FAERS Safety Report 15722879 (Version 1)
Quarter: 2018Q4

REPORT INFORMATION
  Report Type: Report from Study
  Country: BR (occurrence: BR)
  Receive Date: 20181214
  Receipt Date: 20181214
  Transmission Date: 20190205
  Serious: Yes (Hospitalization)
  Sender: FDA-Public Use
  Company Number: BR-AMGEN-BRANI2018176497

PATIENT
  Age: 35 Year
  Sex: Female

DRUGS (10)
  1. DARBEPOETIN ALFA [Suspect]
     Active Substance: DARBEPOETIN ALFA
     Dosage: 130 MUG, Q2WK
     Route: 058
     Dates: start: 20180809, end: 20180905
  2. DARBEPOETIN ALFA [Suspect]
     Active Substance: DARBEPOETIN ALFA
     Dosage: 60 MUG, Q2WK
     Route: 058
     Dates: start: 20180614, end: 20180627
  3. ACETYLSALICYLIC ACID [Concomitant]
     Active Substance: ASPIRIN
     Dosage: UNK
     Dates: start: 2014
  4. DARBEPOETIN ALFA [Suspect]
     Active Substance: DARBEPOETIN ALFA
     Indication: ANAEMIA
     Dosage: 40 MUG, Q2WK
     Route: 058
     Dates: start: 20180517, end: 20180613
  5. DARBEPOETIN ALFA [Suspect]
     Active Substance: DARBEPOETIN ALFA
     Dosage: 100 MUG, Q2WK
     Route: 058
     Dates: start: 20180712, end: 20180808
  6. DARBEPOETIN ALFA [Suspect]
     Active Substance: DARBEPOETIN ALFA
     Dosage: 160 MUG, Q2WK
     Route: 058
     Dates: start: 20180906
  7. DARBEPOETIN ALFA [Suspect]
     Active Substance: DARBEPOETIN ALFA
     Dosage: 80 MUG, Q2WK
     Route: 058
     Dates: start: 20180628, end: 20180711
  8. ERYTHROPOIETIN [Concomitant]
     Active Substance: ERYTHROPOIETIN
     Dosage: UNK
     Dates: start: 201405
  9. FUROSEMIDE. [Concomitant]
     Active Substance: FUROSEMIDE
     Dosage: UNK
     Dates: start: 2013
  10. CICLO [Concomitant]
     Dosage: UNK
     Dates: start: 2014

REACTIONS (1)
  - Infection [Not Recovered/Not Resolved]
